FAERS Safety Report 8217510-1 (Version None)
Quarter: 2012Q1

REPORT INFORMATION
  Report Type: 
  Country: None (occurrence: None)
  Receive Date: 20120305
  Receipt Date: 20111110
  Transmission Date: 20120608
  Serious: Yes (Hospitalization)
  Sender: FDA-Public Use
  Company Number: 1000025386

PATIENT
  Age: 67 Year
  Sex: Female

DRUGS (7)
  1. DALIRESP [Suspect]
     Indication: CHRONIC OBSTRUCTIVE PULMONARY DISEASE
     Dosage: 500 MCG (500 MCG, 1 IN 1 D), ORAL
     Route: 048
     Dates: start: 20111001, end: 20111101
  2. NEXIUM [Concomitant]
  3. ADVAIR (SERETIDE) (SERETIDE) [Concomitant]
  4. SPIRIVA (TIOTROPIUM BROMIDE) (TIOTROPIUM BROMIDE) [Concomitant]
  5. THEOPHYLLINE [Concomitant]
  6. DUONEB (COMBIVENT) (COMBIVENT) [Concomitant]
  7. HALCION [Concomitant]

REACTIONS (5)
  - RENAL FAILURE ACUTE [None]
  - NAUSEA [None]
  - FALL [None]
  - DIARRHOEA [None]
  - DECREASED APPETITE [None]
